FAERS Safety Report 7979629-X (Version None)
Quarter: 2011Q4

REPORT INFORMATION
  Report Type: 
  Country: None (occurrence: None)
  Receive Date: 20111214
  Receipt Date: 20111130
  Transmission Date: 20120403
  Serious: Yes (Hospitalization)
  Sender: FDA-Public Use
  Company Number: DE-MYLANLABS-2011S1024608

PATIENT
  Age: 16 Year
  Sex: Female

DRUGS (11)
  1. CLOZAPINE [Suspect]
     Dosage: DAILY DOSE: 75 MG MILLIGRAM(S) EVERY DAY
     Route: 048
  2. CLOZAPINE [Suspect]
     Dosage: DAILY DOSE: 125 MG MILLIGRAM(S) EVERY DAY
     Route: 048
     Dates: start: 20110813
  3. CLOZAPINE [Suspect]
  4. CLOZAPINE [Suspect]
     Dosage: DAILY DOSE: 100 MG MILLIGRAM(S) EVERY DAY
     Route: 048
     Dates: start: 20110808, end: 20110812
  5. HALDOL [Suspect]
     Dosage: DAILY DOSE: 10 MG MILLIGRAM(S) EVERY DAY
     Route: 048
     Dates: start: 20110802, end: 20110807
  6. HALDOL [Suspect]
     Dosage: DAILY DOSE: 7.5 MG MILLIGRAM(S) EVERY DAY
     Route: 048
     Dates: start: 20110808
  7. CLOZAPINE [Suspect]
     Indication: SCHIZOPHRENIA
     Dosage: DAILY DOSE: 25 MG MILLIGRAM(S) EVERY DAY
     Route: 048
     Dates: start: 20110730, end: 20110801
  8. CLOZAPINE [Suspect]
     Dosage: DAILY DOSE: 50 MG MILLIGRAM(S) EVERY DAY
     Route: 048
     Dates: start: 20110802, end: 20110804
  9. HALDOL [Suspect]
     Dosage: DAILY DOSE: 15 MG MILLIGRAM(S) EVERY DAY
     Route: 048
     Dates: start: 20110723, end: 20110729
  10. HALDOL [Suspect]
     Indication: SCHIZOPHRENIA
     Dosage: DAILY DOSE: 10 MG MILLIGRAM(S) EVERY DAY
     Route: 048
     Dates: start: 20110720, end: 20110722
  11. HALDOL [Suspect]
     Dosage: DAILY DOSE: 12.5 MG MILLIGRAM(S) EVERY DAY
     Route: 048
     Dates: start: 20110730, end: 20110801

REACTIONS (5)
  - AKATHISIA [None]
  - DRUG INEFFECTIVE [None]
  - ABORTION SPONTANEOUS [None]
  - ACUTE PSYCHOSIS [None]
  - MATERNAL EXPOSURE DURING PREGNANCY [None]
